FAERS Safety Report 13833826 (Version 1)
Quarter: 2017Q3

REPORT INFORMATION
  Report Type: Spontaneous
  Country: US (occurrence: US)
  Receive Date: 20170803
  Receipt Date: 20170803
  Transmission Date: 20171127
  Serious: Yes (Hospitalization)
  Sender: FDA-Public Use
  Company Number: None

PATIENT
  Age: 80 Year
  Sex: Male
  Weight: 63.78 kg

DRUGS (1)
  1. BRIMONIDINE [Suspect]
     Active Substance: BRIMONIDINE TARTRATE
     Indication: CONJUNCTIVITIS
     Route: 047
     Dates: start: 20130521, end: 20170508

REACTIONS (5)
  - Eye pruritus [None]
  - Dermatitis [None]
  - Blindness [None]
  - Condition aggravated [None]
  - Conjunctivitis [None]

NARRATIVE: CASE EVENT DATE: 20170506
